FAERS Safety Report 25853332 (Version 1)
Quarter: 2025Q3

REPORT INFORMATION
  Report Type: Spontaneous
  Country: US (occurrence: US)
  Receive Date: 20250926
  Receipt Date: 20250926
  Transmission Date: 20251020
  Serious: No
  Sender: SANDOZ
  Company Number: US-SANDOZ-SDZ2025US069791

PATIENT
  Age: 82 Year
  Sex: Female

DRUGS (2)
  1. CEFTRIAXONE [Suspect]
     Active Substance: CEFTRIAXONE
     Indication: Liver abscess
     Route: 065
  2. LAMPRENE [Suspect]
     Active Substance: CLOFAZIMINE
     Indication: Mycobacterium abscessus infection
     Dosage: 100 MG, QD STRENGTH: 50MG
     Route: 065

REACTIONS (5)
  - Fatigue [Unknown]
  - Postoperative wound infection [Unknown]
  - Application site discomfort [Unknown]
  - Wound [Not Recovered/Not Resolved]
  - Nausea [Unknown]
